FAERS Safety Report 9157317 (Version 1)
Quarter: 2013Q1

REPORT INFORMATION
  Report Type: Report from Study
  Country: US (occurrence: US)
  Receive Date: 20130312
  Receipt Date: 20130312
  Transmission Date: 20140127
  Serious: No
  Sender: FDA-Public Use
  Company Number: US-JNJFOC-20130300987

PATIENT
  Sex: Female
  Weight: 75.3 kg

DRUGS (2)
  1. DURAGESIC [Suspect]
     Indication: BACK PAIN
     Route: 062
     Dates: start: 201212
  2. JANUVIA [Concomitant]
     Indication: DIABETES MELLITUS
     Route: 048
     Dates: start: 2009

REACTIONS (2)
  - Wrong technique in drug usage process [Recovered/Resolved]
  - Incorrect drug administration duration [Not Recovered/Not Resolved]
